FAERS Safety Report 4358790-2 (Version None)
Quarter: 2004Q2

REPORT INFORMATION
  Report Type: 
  Country: None (occurrence: None)
  Receive Date: 20040511
  Receipt Date: 20040427
  Transmission Date: 20050107
  Serious: Yes (Hospitalization)
  Sender: FDA-Public Use
  Company Number: T02-USA-00438-01

PATIENT
  Age: 71 Year
  Sex: Male
  Weight: 85.5 kg

DRUGS (11)
  1. MEMANTINE (UNBLINDED, PHASE A) (MEMANTINE) [Suspect]
     Indication: DEMENTIA ALZHEIMER'S TYPE
     Dosage: 10 MG BID, PO
     Route: 048
     Dates: start: 20020208, end: 20020302
  2. VITAMIN E [Concomitant]
  3. ZOLOFT [Concomitant]
  4. RISPERIDONE [Concomitant]
  5. QUETIAPINE [Concomitant]
  6. DIVALPROEX (DIVALPROEX SODIUM) [Concomitant]
  7. LORAZEPAM [Concomitant]
  8. DROPERIDOL [Concomitant]
  9. ASPIRIN [Concomitant]
  10. BENZOCAINE [Concomitant]
  11. ACETAMINOPHEN [Concomitant]

REACTIONS (14)
  - AGGRESSION [None]
  - BLOOD CALCIUM INCREASED [None]
  - BLOOD PRESSURE INCREASED [None]
  - CONDITION AGGRAVATED [None]
  - CONFUSIONAL STATE [None]
  - DEMENTIA ALZHEIMER'S TYPE [None]
  - DISORIENTATION [None]
  - GINGIVAL PAIN [None]
  - HYPONATRAEMIA [None]
  - LACERATION [None]
  - LIBIDO INCREASED [None]
  - PSYCHOTIC DISORDER [None]
  - RED BLOOD CELL COUNT DECREASED [None]
  - SEDATION [None]
